FAERS Safety Report 13932540 (Version 3)
Quarter: 2018Q2

REPORT INFORMATION
  Report Type: Spontaneous
  Country: DE (occurrence: DE)
  Receive Date: 20170904
  Receipt Date: 20180626
  Transmission Date: 20180711
  Serious: Yes (Life-Threatening, Hospitalization, Other)
  Sender: FDA-Public Use
  Company Number: DE-DRREDDYS-USA/GER/17/0093091

PATIENT
  Age: 25 Year
  Sex: Female

DRUGS (3)
  1. LEVETIRACETAM. [Suspect]
     Active Substance: LEVETIRACETAM
     Indication: MYOCLONUS
     Route: 065
  2. QUETIAPINE. [Suspect]
     Active Substance: QUETIAPINE
     Indication: BORDERLINE PERSONALITY DISORDER
     Dosage: POTENTIALLY LETHAL DOSE. 10 G OF QUETIAPINE.
     Route: 048
  3. AMITRIPTYLINE [Suspect]
     Active Substance: AMITRIPTYLINE
     Indication: BORDERLINE PERSONALITY DISORDER
     Dosage: POTENTIALLY LETHAL DOSE
     Route: 048

REACTIONS (12)
  - Myoclonus [Recovered/Resolved]
  - Toxicity to various agents [Recovering/Resolving]
  - Alcohol poisoning [Recovering/Resolving]
  - Shock [Recovered/Resolved]
  - Hyperthermia [Recovered/Resolved]
  - Toxicity to various agents [Recovered/Resolved]
  - Arrhythmia [Recovered/Resolved]
  - Treatment failure [Unknown]
  - Anticholinergic syndrome [Recovered/Resolved]
  - Electrocardiogram QT prolonged [Recovering/Resolving]
  - Ventricular tachycardia [Recovered/Resolved]
  - Coma [Recovered/Resolved]
